FAERS Safety Report 16018970 (Version 1)
Quarter: 2019Q1

REPORT INFORMATION
  Report Type: Spontaneous
  Country: US (occurrence: US)
  Receive Date: 20190228
  Receipt Date: 20190228
  Transmission Date: 20190418
  Serious: Yes (Other)
  Sender: FDA-Public Use
  Company Number: US-UNICHEM PHARMACEUTICALS (USA) INC-UCM201902-000088

PATIENT
  Age: 70 Year
  Sex: Female
  Weight: 99.79 kg

DRUGS (6)
  1. ALEVE [Concomitant]
     Active Substance: NAPROXEN SODIUM
     Indication: HEADACHE
  2. LIPOTROPIC COMPLEX AND HTN COMPLEX [Concomitant]
     Indication: HYPERTENSION
     Dates: start: 20190101
  3. HYDROCHLOROTHIAZIDE. [Suspect]
     Active Substance: HYDROCHLOROTHIAZIDE
     Indication: HYPERTENSION
     Dates: start: 20181105, end: 20181221
  4. BENADRYL [Concomitant]
     Active Substance: DIPHENHYDRAMINE HYDROCHLORIDE
     Indication: SEASONAL ALLERGY
  5. E-HIST [Concomitant]
     Indication: HYPERSENSITIVITY
  6. ASPIRIN. [Concomitant]
     Active Substance: ASPIRIN
     Indication: HEADACHE

REACTIONS (11)
  - Pharyngeal oedema [Unknown]
  - Dizziness [Recovering/Resolving]
  - Burning sensation [Not Recovered/Not Resolved]
  - Balance disorder [Not Recovered/Not Resolved]
  - Paraesthesia [Not Recovered/Not Resolved]
  - Dysphagia [Not Recovered/Not Resolved]
  - Hypoaesthesia [Not Recovered/Not Resolved]
  - Swollen tongue [Unknown]
  - Dysarthria [Not Recovered/Not Resolved]
  - Blood glucose increased [Unknown]
  - Dysphonia [Not Recovered/Not Resolved]
